FAERS Safety Report 7787257-4 (Version None)
Quarter: 2011Q3

REPORT INFORMATION
  Report Type: 
  Country: None (occurrence: None)
  Receive Date: 20110929
  Receipt Date: 20110920
  Transmission Date: 20111222
  Serious: Yes (Other)
  Sender: FDA-Public Use
  Company Number: US-BAYER-2011-006968

PATIENT
  Age: 46 Year
  Sex: Female
  Weight: 63 kg

DRUGS (1)
  1. YASMIN [Suspect]
     Indication: PREMENSTRUAL SYNDROME
     Dosage: UNK
     Dates: start: 20031006, end: 20070128

REACTIONS (6)
  - GALLBLADDER DISORDER [None]
  - DYSPEPSIA [None]
  - EMOTIONAL DISTRESS [None]
  - PAIN [None]
  - HEPATIC CIRRHOSIS [None]
  - ANXIETY [None]
